FAERS Safety Report 17347581 (Version 6)
Quarter: 2020Q2

REPORT INFORMATION
  Report Type: Spontaneous
  Country: US (occurrence: US)
  Receive Date: 20200130
  Receipt Date: 20200527
  Transmission Date: 20200713
  Serious: No
  Sender: FDA-Public Use
  Company Number: US-VERTEX PHARMACEUTICALS-2020-001300

PATIENT
  Age: 48 Year
  Sex: Male

DRUGS (16)
  1. CREON [Concomitant]
     Active Substance: PANCRELIPASE AMYLASE\PANCRELIPASE LIPASE\PANCRELIPASE PROTEASE
     Dosage: 5 CAPSULE/MEAL+ 3 CAPSULE WITH SNAKS
  2. TRIKAFTA [Suspect]
     Active Substance: ELEXACAFTOR\IVACAFTOR\TEZACAFTOR
     Dosage: 2 TABS (100MG / 50MG / 75 MG) IN AM, 1 TAB (150MG) PM
     Route: 048
     Dates: start: 202001, end: 20200224
  3. PULMOZYME [Concomitant]
     Active Substance: DORNASE ALFA
  4. NOVOLOG [Concomitant]
     Active Substance: INSULIN ASPART
  5. LEVOTHYROXINE. [Concomitant]
     Active Substance: LEVOTHYROXINE
  6. TRAMADOL. [Concomitant]
     Active Substance: TRAMADOL
  7. TRIKAFTA [Suspect]
     Active Substance: ELEXACAFTOR\IVACAFTOR\TEZACAFTOR
     Indication: CYSTIC FIBROSIS
     Dosage: 2 TABS (100MG / 50MG / 75 MG) IN MORNING ONLY
     Route: 048
     Dates: start: 20200117, end: 2020
  8. VENTOLIN [Concomitant]
     Active Substance: ALBUTEROL SULFATE
  9. ESOMEPRAZOLE. [Concomitant]
     Active Substance: ESOMEPRAZOLE MAGNESIUM
  10. CETIRIZINE [Concomitant]
     Active Substance: CETIRIZINE HYDROCHLORIDE
  11. ADVAIR HFA [Concomitant]
     Active Substance: FLUTICASONE PROPIONATE\SALMETEROL XINAFOATE
  12. SODIUM CHLORIDE. [Concomitant]
     Active Substance: SODIUM CHLORIDE
  13. ROPINIROLE. [Concomitant]
     Active Substance: ROPINIROLE
  14. TRIKAFTA [Suspect]
     Active Substance: ELEXACAFTOR\IVACAFTOR\TEZACAFTOR
     Dosage: 2  AM  TABS AT DIFFERENT TIMES
     Route: 048
     Dates: start: 20200303
  15. DRONABINOL. [Concomitant]
     Active Substance: DRONABINOL
  16. CREON [Concomitant]
     Active Substance: PANCRELIPASE AMYLASE\PANCRELIPASE LIPASE\PANCRELIPASE PROTEASE
     Dosage: 4 CAPSULE/MEAL+ 3 CAPSULE WITH SNAKS

REACTIONS (16)
  - Weight increased [Recovered/Resolved]
  - Rash [Recovered/Resolved]
  - Pain in extremity [Unknown]
  - Pulmonary function test decreased [Unknown]
  - Lacrimation increased [Not Recovered/Not Resolved]
  - Dyspnoea [Not Recovered/Not Resolved]
  - Sensory disturbance [Not Recovered/Not Resolved]
  - Feeling hot [Not Recovered/Not Resolved]
  - Vision blurred [Not Recovered/Not Resolved]
  - Increased bronchial secretion [Unknown]
  - Peripheral swelling [Unknown]
  - Epistaxis [Unknown]
  - Diarrhoea [Recovered/Resolved]
  - Gait disturbance [Unknown]
  - Hyperphagia [Unknown]
  - Dry eye [Not Recovered/Not Resolved]

NARRATIVE: CASE EVENT DATE: 2020
